FAERS Safety Report 7825048-6 (Version None)
Quarter: 2011Q4

REPORT INFORMATION
  Report Type: 
  Country: None (occurrence: None)
  Receive Date: 20111019
  Receipt Date: 20110421
  Transmission Date: 20120403
  Serious: No
  Sender: FDA-Public Use
  Company Number: US-BRISTOL-MYERS SQUIBB COMPANY-15692882

PATIENT
  Sex: Female

DRUGS (2)
  1. SIMVASTATIN [Concomitant]
  2. AVALIDE [Suspect]
     Dosage: 1 DF=150/12.5 MG  AUTHORIZATION NO:20-758

REACTIONS (1)
  - WHITE BLOOD CELL COUNT DECREASED [None]
